FAERS Safety Report 6960847-4 (Version None)
Quarter: 2010Q3

REPORT INFORMATION
  Report Type: 
  Country: None (occurrence: None)
  Receive Date: 20100901
  Receipt Date: 20100824
  Transmission Date: 20110219
  Serious: Yes (Life-Threatening, Other)
  Sender: FDA-Public Use
  Company Number: JP-ROCHE-723814

PATIENT
  Sex: Male
  Weight: 47 kg

DRUGS (10)
  1. AVASTIN [Suspect]
     Indication: RECTAL CANCER RECURRENT
     Route: 041
     Dates: start: 20100422, end: 20100622
  2. LEUCOVORIN CALCIUM [Concomitant]
     Route: 041
     Dates: start: 20100422, end: 20100622
  3. ELPLAT [Concomitant]
     Route: 041
     Dates: start: 20100422, end: 20100622
  4. FLUOROURACIL [Concomitant]
     Route: 041
     Dates: start: 20100422, end: 20100623
  5. DECADRON [Concomitant]
     Route: 042
     Dates: start: 20100422, end: 20100622
  6. GRANISETRON HYDROCHLORIDE [Concomitant]
     Dates: start: 20100422, end: 20100622
  7. ELIETEN [Concomitant]
     Route: 042
     Dates: start: 20100422, end: 20100622
  8. HALCION [Concomitant]
     Route: 048
     Dates: start: 20051109, end: 20100806
  9. MUCOSTA [Concomitant]
     Route: 048
     Dates: start: 20100612, end: 20100806
  10. OLMESARTAN MEDOXOMIL [Concomitant]
     Route: 048
     Dates: start: 20090804, end: 20100806

REACTIONS (7)
  - CONSTIPATION [None]
  - ILEUS [None]
  - PAIN [None]
  - PERITONITIS [None]
  - SHOCK [None]
  - SMALL INTESTINAL PERFORATION [None]
  - WOUND INFECTION [None]
